FAERS Safety Report 25615929 (Version 1)
Quarter: 2025Q3

REPORT INFORMATION
  Report Type: Spontaneous
  Country: US (occurrence: US)
  Receive Date: 20250729
  Receipt Date: 20250729
  Transmission Date: 20251021
  Serious: No
  Sender: UNIQUE PHARMACEUTICALS
  Company Number: US-UniquePharma-US-2025UPLSPO00088

PATIENT
  Age: 81 Year
  Sex: Female

DRUGS (2)
  1. GLIPIZIDE [Suspect]
     Active Substance: GLIPIZIDE
     Indication: Type 2 diabetes mellitus
     Route: 065
  2. GLIPIZIDE [Suspect]
     Active Substance: GLIPIZIDE
     Route: 065

REACTIONS (5)
  - Illness [Unknown]
  - Presyncope [Unknown]
  - Head discomfort [Unknown]
  - Diarrhoea [Unknown]
  - Blood glucose decreased [Unknown]
